FAERS Safety Report 20424146 (Version 1)
Quarter: 2022Q1

REPORT INFORMATION
  Report Type: Report from Study
  Country: US (occurrence: US)
  Receive Date: 20220203
  Receipt Date: 20220203
  Transmission Date: 20220424
  Serious: Yes (Hospitalization)
  Sender: FDA-Public Use
  Company Number: US-EXELIXIS-CABO-21038693

PATIENT
  Sex: Male
  Weight: 135 kg

DRUGS (15)
  1. CABOMETYX [Suspect]
     Active Substance: CABOZANTINIB S-MALATE
     Indication: Hepatic cancer
     Dosage: 60 MG, QD
     Route: 048
     Dates: start: 20200211
  2. CABOMETYX [Suspect]
     Active Substance: CABOZANTINIB S-MALATE
     Indication: Renal cancer
  3. FLUTICASONE PROPIONATE [Concomitant]
     Active Substance: FLUTICASONE PROPIONATE
  4. IMODIUM MULTI-SYMPTOM RELIEF [Concomitant]
     Active Substance: DIMETHICONE\LOPERAMIDE HYDROCHLORIDE
  5. VITAMINS [Concomitant]
     Active Substance: VITAMINS
  6. PROCHLORPERAZINE MALEATE [Concomitant]
     Active Substance: PROCHLORPERAZINE MALEATE
  7. ONDANSETRON [Concomitant]
     Active Substance: ONDANSETRON
  8. LOPERAMIDE [Concomitant]
     Active Substance: LOPERAMIDE
  9. EVEROLIMUS [Concomitant]
     Active Substance: EVEROLIMUS
  10. MEGESTROL ACETATE [Concomitant]
     Active Substance: MEGESTROL ACETATE
  11. FENOFIBRIC ACID [Concomitant]
     Active Substance: FENOFIBRIC ACID
  12. SIMVASTATIN [Concomitant]
     Active Substance: SIMVASTATIN
  13. NYSTATIN [Concomitant]
     Active Substance: NYSTATIN
  14. Allergy relief [Concomitant]
  15. FLUOROURACIL [Concomitant]
     Active Substance: FLUOROURACIL

REACTIONS (1)
  - Fatigue [Unknown]
